FAERS Safety Report 8885948 (Version 1)
Quarter: 2012Q4

REPORT INFORMATION
  Report Type: 
  Country: US (occurrence: US)
  Receive Date: 20121105
  Receipt Date: 20121105
  Transmission Date: 20130627
  Serious: No
  Sender: FDA-Public Use
  Company Number: US-PFIZER INC-2012274929

PATIENT
  Sex: Female

DRUGS (3)
  1. CHANTIX [Suspect]
     Indication: SMOKING CESSATION THERAPY
     Dosage: 0.5 mg, 1x/day
     Route: 048
     Dates: start: 200807, end: 2008
  2. CHANTIX [Suspect]
     Dosage: UNK
     Route: 048
     Dates: start: 2008, end: 200808
  3. CHANTIX [Suspect]
     Dosage: UNK
     Route: 048

REACTIONS (5)
  - Nausea [Unknown]
  - Drug prescribing error [Unknown]
  - Expired drug administered [Unknown]
  - Malaise [Unknown]
  - Vomiting [Unknown]
